FAERS Safety Report 6298598-4 (Version None)
Quarter: 2009Q3

REPORT INFORMATION
  Report Type: 
  Country: None (occurrence: None)
  Receive Date: 20090805
  Receipt Date: 20090728
  Transmission Date: 20100115
  Serious: Yes (Other)
  Sender: FDA-Public Use
  Company Number: FR-AMGEN-US358641

PATIENT
  Sex: Female

DRUGS (3)
  1. ENBREL [Suspect]
     Indication: DRUG USE FOR UNKNOWN INDICATION
     Route: 058
     Dates: start: 20090501, end: 20090501
  2. ENBREL [Suspect]
     Dosage: 1 DOSE OF ENBREL DILUTED AT 1:50
     Route: 023
     Dates: start: 20090701, end: 20090701
  3. HUMIRA [Concomitant]

REACTIONS (11)
  - BLOOD PRESSURE INCREASED [None]
  - CHEST DISCOMFORT [None]
  - DYSPHONIA [None]
  - DYSPNOEA [None]
  - INJECTION SITE ERYTHEMA [None]
  - INJECTION SITE HYPERSENSITIVITY [None]
  - INJECTION SITE PRURITUS [None]
  - INJECTION SITE SWELLING [None]
  - PHOSPHENES [None]
  - SKIN TEST POSITIVE [None]
  - SOMNOLENCE [None]
